FAERS Safety Report 21904617 (Version 1)
Quarter: 2023Q1

REPORT INFORMATION
  Report Type: Spontaneous
  Country: US (occurrence: None)
  Receive Date: 20230124
  Receipt Date: 20230124
  Transmission Date: 20230418
  Serious: Yes (Hospitalization)
  Sender: FDA-Public Use
  Company Number: None

PATIENT
  Age: 69 Year
  Sex: Male
  Weight: 34.36 kg

DRUGS (1)
  1. LISINOPRIL [Suspect]
     Active Substance: LISINOPRIL
     Indication: Hypertension
     Dosage: FREQUENCY : DAILY;?
     Route: 048
     Dates: start: 20220914, end: 20221018

REACTIONS (3)
  - Lip swelling [None]
  - Angioedema [None]
  - Therapy cessation [None]

NARRATIVE: CASE EVENT DATE: 20221017
